FAERS Safety Report 9185920 (Version 1)
Quarter: 2013Q1

REPORT INFORMATION
  Report Type: Spontaneous
  Country: US (occurrence: US)
  Receive Date: 20130325
  Receipt Date: 20130325
  Transmission Date: 20140127
  Serious: Yes (Other)
  Sender: FDA-Public Use
  Company Number: US-ASTRAZENECA-2013SE18169

PATIENT
  Age: 50 Year
  Sex: Female

DRUGS (14)
  1. SEROQUEL XR [Suspect]
     Indication: MAJOR DEPRESSION
     Route: 048
     Dates: start: 2011
  2. SEROQUEL XR [Suspect]
     Indication: ANXIETY
     Route: 048
     Dates: start: 2011
  3. SEROQUEL XR [Suspect]
     Indication: INSOMNIA
     Route: 048
     Dates: start: 2011
  4. SEROQUEL XR [Suspect]
     Indication: MAJOR DEPRESSION
     Route: 048
     Dates: start: 2012
  5. SEROQUEL XR [Suspect]
     Indication: ANXIETY
     Route: 048
     Dates: start: 2012
  6. SEROQUEL XR [Suspect]
     Indication: INSOMNIA
     Route: 048
     Dates: start: 2012
  7. SEROQUEL XR [Suspect]
     Indication: MAJOR DEPRESSION
     Route: 048
  8. SEROQUEL XR [Suspect]
     Indication: ANXIETY
     Route: 048
  9. SEROQUEL XR [Suspect]
     Indication: INSOMNIA
     Route: 048
  10. SEROQUEL XR [Suspect]
     Indication: MAJOR DEPRESSION
     Route: 048
  11. SEROQUEL XR [Suspect]
     Indication: ANXIETY
     Route: 048
  12. SEROQUEL XR [Suspect]
     Indication: INSOMNIA
     Route: 048
  13. WELLBUTRIN [Concomitant]
     Indication: DEPRESSION
  14. MELATONIN [Concomitant]

REACTIONS (4)
  - Electrocardiogram QT prolonged [Unknown]
  - Blood glucose decreased [Recovered/Resolved]
  - Syncope [Unknown]
  - Drug ineffective [Unknown]
